FAERS Safety Report 11052095 (Version 1)
Quarter: 2015Q2

REPORT INFORMATION
  Report Type: Spontaneous
  Country: DE (occurrence: DE)
  Receive Date: 20150421
  Receipt Date: 20150421
  Transmission Date: 20150821
  Serious: Yes (Hospitalization)
  Sender: FDA-Public Use
  Company Number: DE-DSJP-DSE-2015-112199

PATIENT

DRUGS (1)
  1. VOCADO HCT [Suspect]
     Active Substance: AMLODIPINE BESYLATE\HYDROCHLOROTHIAZIDE\OLMESARTAN MEDOXOMIL
     Indication: PRODUCT USED FOR UNKNOWN INDICATION
     Route: 048

REACTIONS (12)
  - Headache [Unknown]
  - Pruritus generalised [Unknown]
  - Muscle spasms [Unknown]
  - Peripheral swelling [Unknown]
  - Mouth swelling [Unknown]
  - Blood pressure increased [Unknown]
  - Dry mouth [Unknown]
  - Palpitations [Unknown]
  - Urticaria [Unknown]
  - Oedema [Unknown]
  - Lip swelling [Unknown]
  - Flushing [Unknown]
